FAERS Safety Report 7908334-0 (Version None)
Quarter: 2011Q4

REPORT INFORMATION
  Report Type: 
  Country: None (occurrence: None)
  Receive Date: 20111109
  Receipt Date: 20111109
  Transmission Date: 20120403
  Serious: Yes (Hospitalization)
  Sender: FDA-Public Use
  Company Number: None

PATIENT
  Sex: Female
  Weight: 75.4 kg

DRUGS (1)
  1. CISPLATIN [Suspect]
     Dosage: 367 MG
     Dates: end: 20090302

REACTIONS (3)
  - BODY TEMPERATURE INCREASED [None]
  - NEUTROPENIA [None]
  - MUCOSAL INFLAMMATION [None]
